FAERS Safety Report 10168381 (Version 1)
Quarter: 2014Q2

REPORT INFORMATION
  Report Type: Spontaneous
  Country: US (occurrence: US)
  Receive Date: 20140513
  Receipt Date: 20140513
  Transmission Date: 20141212
  Serious: Yes (Hospitalization)
  Sender: FDA-Public Use
  Company Number: US-AMGEN-USASP2014033372

PATIENT
  Age: 52 Year
  Sex: Male

DRUGS (1)
  1. PROLIA [Suspect]
     Indication: SENILE OSTEOPOROSIS
     Dosage: UNK
     Route: 065
     Dates: start: 20131122

REACTIONS (3)
  - Pneumonia aspiration [Unknown]
  - Vomiting [Unknown]
  - Drooling [Unknown]
